FAERS Safety Report 9026168 (Version 1)
Quarter: 2012Q4

REPORT INFORMATION
  Report Type: Spontaneous
  Country: US (occurrence: None)
  Receive Date: 20121213
  Receipt Date: 20121213
  Transmission Date: 20130627
  Serious: Yes (Life-Threatening)
  Sender: FDA-Public Use
  Company Number: None

PATIENT
  Age: 66 Year
  Sex: Female

DRUGS (1)
  1. PIPERACILLIN + TAZOBACTAM [Suspect]
     Dosage: 3.75 GM IV Q8H (4 HR I
     Route: 042
     Dates: start: 20120809, end: 20120813

REACTIONS (3)
  - Nephritis allergic [None]
  - Renal failure acute [None]
  - Haemodialysis [None]
